FAERS Safety Report 7969061-7 (Version None)
Quarter: 2011Q4

REPORT INFORMATION
  Report Type: 
  Country: None (occurrence: None)
  Receive Date: 20111208
  Receipt Date: 20111123
  Transmission Date: 20120403
  Serious: Yes (Other)
  Sender: FDA-Public Use
  Company Number: FR-20110236

PATIENT
  Sex: Female

DRUGS (1)
  1. HEXABRIX [Suspect]
     Indication: ARTHROGRAM
     Dosage: 15 ML (15 ML, 1 IN 1 TOTAL) INTRA-ARTICULAR
     Route: 014

REACTIONS (6)
  - HYPERSENSITIVITY [None]
  - CHILLS [None]
  - INFLUENZA LIKE ILLNESS [None]
  - HOT FLUSH [None]
  - CONFUSIONAL STATE [None]
  - HYPERTHERMIA [None]
